FAERS Safety Report 10945441 (Version 2)
Quarter: 2015Q1

REPORT INFORMATION
  Report Type: Spontaneous
  Country: US (occurrence: None)
  Receive Date: 20150319
  Receipt Date: 20150326
  Transmission Date: 20150721
  Serious: Yes (Other)
  Sender: FDA-Public Use
  Company Number: 201503078

PATIENT
  Age: 59 Year
  Sex: Male
  Weight: 99.79 kg

DRUGS (2)
  1. TESTOPEL [Suspect]
     Active Substance: TESTOSTERONE
     Indication: BLOOD TESTOSTERONE DECREASED
     Route: 058
     Dates: start: 20130814
  2. ANTIHYPERTENSIVES [Concomitant]
     Active Substance: UNSPECIFIED INGREDIENT

REACTIONS (9)
  - Red blood cell count increased [None]
  - Implant site discolouration [None]
  - Weight increased [None]
  - Implant site bruising [None]
  - Prescribed overdose [None]
  - Implant site pain [None]
  - No therapeutic response [None]
  - Pruritus generalised [None]
  - Incision site haemorrhage [None]

NARRATIVE: CASE EVENT DATE: 20150306
